FAERS Safety Report 22070499 (Version 3)
Quarter: 2023Q2

REPORT INFORMATION
  Report Type: Spontaneous
  Country: AU (occurrence: AU)
  Receive Date: 20230307
  Receipt Date: 20230629
  Transmission Date: 20230721
  Serious: Yes (Hospitalization, Other)
  Sender: FDA-Public Use
  Company Number: AU-ABBVIE-4330873

PATIENT
  Sex: Male

DRUGS (2)
  1. CARBIDOPA\LEVODOPA [Suspect]
     Active Substance: CARBIDOPA\LEVODOPA
     Indication: Parkinson^s disease
     Route: 050
  2. CARBIDOPA\LEVODOPA [Suspect]
     Active Substance: CARBIDOPA\LEVODOPA

REACTIONS (10)
  - Embedded device [Not Recovered/Not Resolved]
  - Stoma site discomfort [Unknown]
  - Hospitalisation [Recovered/Resolved]
  - Excessive granulation tissue [Unknown]
  - Device leakage [Unknown]
  - Device occlusion [Unknown]
  - Device dislocation [Recovered/Resolved]
  - Infection [Unknown]
  - Excessive granulation tissue [Unknown]
  - Stoma site discharge [Unknown]

NARRATIVE: CASE EVENT DATE: 20230101
